FAERS Safety Report 6539179-4 (Version None)
Quarter: 2010Q1

REPORT INFORMATION
  Report Type: 
  Country: None (occurrence: None)
  Receive Date: 20100115
  Receipt Date: 20100108
  Transmission Date: 20100710
  Serious: Yes (Hospitalization)
  Sender: FDA-Public Use
  Company Number: US-RB-000755-10

PATIENT
  Age: 76 Year
  Sex: Male

DRUGS (1)
  1. DELSYM ADULT ORANGE [Suspect]
     Route: 048
     Dates: start: 20100107

REACTIONS (3)
  - DIARRHOEA [None]
  - FALL [None]
  - VOMITING [None]
